FAERS Safety Report 19733003 (Version 1)
Quarter: 2021Q3

REPORT INFORMATION
  Report Type: Spontaneous
  Country: US (occurrence: US)
  Receive Date: 20210822
  Receipt Date: 20210822
  Transmission Date: 20211014
  Serious: Yes (Life-Threatening, Disabling)
  Sender: FDA-Public Use
  Company Number: None

PATIENT
  Age: 24 Year
  Sex: Male
  Weight: 83.25 kg

DRUGS (1)
  1. LEVOFLOXACIN. [Suspect]
     Active Substance: LEVOFLOXACIN
     Indication: EAR INFECTION
     Dosage: QUANTITY:1 TABLET(S);?
     Route: 048
     Dates: start: 20210724, end: 20210725

REACTIONS (24)
  - Back pain [None]
  - Depression [None]
  - Nausea [None]
  - Muscle tightness [None]
  - Asthenia [None]
  - Abdominal pain upper [None]
  - Insomnia [None]
  - Panic attack [None]
  - Hyperhidrosis [None]
  - Miliaria [None]
  - Middle insomnia [None]
  - Diarrhoea [None]
  - Anxiety [None]
  - Pain in extremity [None]
  - Muscle spasms [None]
  - Fatigue [None]
  - Chest pain [None]
  - Tendon pain [None]
  - Hallucination, auditory [None]
  - Gait disturbance [None]
  - Arthralgia [None]
  - Neuropathy peripheral [None]
  - Nightmare [None]
  - Thinking abnormal [None]

NARRATIVE: CASE EVENT DATE: 20210726
